FAERS Safety Report 4411937-1 (Version None)
Quarter: 2004Q3

REPORT INFORMATION
  Report Type: 
  Country: None (occurrence: None)
  Receive Date: 20040730
  Receipt Date: 20030908
  Transmission Date: 20050211
  Serious: Yes (Hospitalization, Other)
  Sender: FDA-Public Use
  Company Number: US-MERCK-0309USA00839

PATIENT
  Age: 61 Year
  Sex: Male
  Weight: 63 kg

DRUGS (13)
  1. TYLENOL [Concomitant]
     Route: 065
  2. ACETAMINOPHEN AND PROPOXYPHENE NAPSYLATE [Concomitant]
     Route: 065
  3. XANAX [Concomitant]
     Route: 065
  4. ASPIRIN [Concomitant]
     Route: 065
  5. LIBRAX CAPSULES [Concomitant]
     Route: 065
  6. CYCLOBENZAPRINE HYDROCHLORIDE [Concomitant]
     Route: 065
  7. ALLEGRA [Concomitant]
     Route: 065
  8. PRILOSEC [Concomitant]
     Route: 065
  9. ZANTAC [Concomitant]
     Route: 065
  10. VIOXX [Suspect]
     Indication: LOCALISED OSTEOARTHRITIS
     Route: 048
     Dates: start: 19991006, end: 20020101
  11. VIOXX [Suspect]
     Route: 048
     Dates: start: 20020306
  12. VIOXX [Suspect]
     Indication: TENDONITIS
     Route: 048
     Dates: start: 19991006, end: 20020101
  13. VIOXX [Suspect]
     Route: 048
     Dates: start: 20020306

REACTIONS (29)
  - ACTINIC KERATOSIS [None]
  - BENIGN NEOPLASM [None]
  - CHEST PAIN [None]
  - COLONIC POLYP [None]
  - CORONARY ARTERY DISEASE [None]
  - CORONARY ARTERY RESTENOSIS [None]
  - DEPRESSION [None]
  - DERMATITIS [None]
  - EPICONDYLITIS [None]
  - EXOSTOSIS [None]
  - GASTROENTERITIS VIRAL [None]
  - GENERALISED ANXIETY DISORDER [None]
  - GOUT [None]
  - HAEMATOMA [None]
  - HYPERCHOLESTEROLAEMIA [None]
  - HYPERTENSION [None]
  - INSOMNIA [None]
  - INTERVERTEBRAL DISC DEGENERATION [None]
  - LUNG NEOPLASM [None]
  - MYOCARDIAL INFARCTION [None]
  - MYOSITIS [None]
  - OSTEOCHONDROSIS [None]
  - PAIN IN EXTREMITY [None]
  - RECTAL HAEMORRHAGE [None]
  - ROTATOR CUFF SYNDROME [None]
  - SLEEP DISORDER [None]
  - TENDONITIS [None]
  - TINNITUS [None]
  - URINARY TRACT INFECTION [None]
